FAERS Safety Report 5022138-0 (Version None)
Quarter: 2006Q2

REPORT INFORMATION
  Report Type: 
  Country: None (occurrence: None)
  Receive Date: 20060605
  Receipt Date: 20060519
  Transmission Date: 20061013
  Serious: Yes (Disabling, Other)
  Sender: FDA-Public Use
  Company Number: 2006-BP-05757RO

PATIENT
  Age: 21 Year
  Sex: Male

DRUGS (2)
  1. DICLOFENAC [Suspect]
     Indication: PHARYNGOLARYNGEAL PAIN
  2. IBUPROFEN [Suspect]
     Indication: PHARYNGOLARYNGEAL PAIN

REACTIONS (18)
  - BLOOD BILIRUBIN INCREASED [None]
  - DIABETES MELLITUS INSULIN-DEPENDENT [None]
  - DIABETIC KETOACIDOSIS [None]
  - DRUG HYPERSENSITIVITY [None]
  - EOSINOPHILIA [None]
  - FACE OEDEMA [None]
  - HEPATIC FUNCTION ABNORMAL [None]
  - HEPATITIS [None]
  - LEUKOCYTOSIS [None]
  - LICHENOID KERATOSIS [None]
  - LIP EROSION [None]
  - METABOLIC ACIDOSIS [None]
  - NORMOCHROMIC NORMOCYTIC ANAEMIA [None]
  - PANCREATIC ENZYMES INCREASED [None]
  - PROTHROMBIN TIME PROLONGED [None]
  - THROMBOCYTOPENIA [None]
  - TONSILLITIS [None]
  - VOMITING [None]
